FAERS Safety Report 13546399 (Version 1)
Quarter: 2017Q2

REPORT INFORMATION
  Report Type: Spontaneous
  Country: US (occurrence: US)
  Receive Date: 20170515
  Receipt Date: 20170515
  Transmission Date: 20170830
  Serious: No
  Sender: FDA-Public Use
  Company Number: US-VIFOR (INTERNATIONAL) INC.-VIT-2016-06199

PATIENT
  Sex: Female

DRUGS (20)
  1. CARVEDILOL. [Concomitant]
     Active Substance: CARVEDILOL
  2. ESZOPICLONE. [Concomitant]
     Active Substance: ESZOPICLONE
  3. SIMVASTATIN. [Concomitant]
     Active Substance: SIMVASTATIN
  4. CARVEDILOL. [Concomitant]
     Active Substance: CARVEDILOL
  5. ARMOUR THYROID [Concomitant]
     Active Substance: THYROID, PORCINE
  6. CYCLOBENZAPRINE. [Concomitant]
     Active Substance: CYCLOBENZAPRINE
  7. NEXIUM [Concomitant]
     Active Substance: ESOMEPRAZOLE MAGNESIUM
  8. DOXYCYCLINE HYCLATE. [Concomitant]
     Active Substance: DOXYCYCLINE HYCLATE
  9. ARMOUR THYROID [Concomitant]
     Active Substance: THYROID, PORCINE
  10. GABAPENTIN. [Concomitant]
     Active Substance: GABAPENTIN
  11. CICLOSPORIN [Concomitant]
     Active Substance: CYCLOSPORINE
  12. ALPRAZOLAM. [Concomitant]
     Active Substance: ALPRAZOLAM
  13. FLUTICASONE. [Concomitant]
     Active Substance: FLUTICASONE
  14. ULORIC [Concomitant]
     Active Substance: FEBUXOSTAT
  15. IPRATROPIUM [Concomitant]
     Active Substance: IPRATROPIUM
  16. VELTASSA [Suspect]
     Active Substance: PATIROMER
     Indication: HYPERKALAEMIA
     Route: 048
     Dates: start: 20160720
  17. LEVOTHYROXINE. [Concomitant]
     Active Substance: LEVOTHYROXINE
  18. OXYCODONE [Concomitant]
     Active Substance: OXYCODONE
  19. MINOCYCLINE [Concomitant]
     Active Substance: MINOCYCLINE\MINOCYCLINE HYDROCHLORIDE
  20. HYDROXYZINE EMBONATE [Concomitant]
     Active Substance: HYDROXYZINE PAMOATE

REACTIONS (5)
  - Constipation [Unknown]
  - Fatigue [Unknown]
  - Influenza like illness [Unknown]
  - Drug dose omission [Recovered/Resolved]
  - Nausea [Recovering/Resolving]

NARRATIVE: CASE EVENT DATE: 2016
